FAERS Safety Report 6595140-5 (Version None)
Quarter: 2010Q1

REPORT INFORMATION
  Report Type: 
  Country: None (occurrence: None)
  Receive Date: 20100212
  Receipt Date: 20100129
  Transmission Date: 20100710
  Serious: Yes (Hospitalization)
  Sender: FDA-Public Use
  Company Number: TCI2009A02274

PATIENT
  Age: 66 Year
  Sex: Female

DRUGS (3)
  1. LANSOPRAZOLE [Suspect]
     Indication: DYSPEPSIA
     Dosage: 15 MG (15 MG, 1 IN 1 D) PER ORAL
     Route: 048
     Dates: start: 20070901, end: 20080610
  2. GANATON (ITOPRIDE HYDROCHLORIDE) [Concomitant]
  3. ATELEC (CILNIDIPINE) [Concomitant]

REACTIONS (8)
  - BLOOD IMMUNOGLOBULIN G DECREASED [None]
  - COLITIS COLLAGENOUS [None]
  - ENTEROCOLITIS [None]
  - HYPOALBUMINAEMIA [None]
  - HYPOPROTEINAEMIA [None]
  - LARGE INTESTINAL ULCER [None]
  - MELAENA [None]
  - OEDEMA PERIPHERAL [None]
